FAERS Safety Report 12608691 (Version 1)
Quarter: 2016Q3

REPORT INFORMATION
  Report Type: Spontaneous
  Country: JP (occurrence: JP)
  Receive Date: 20160729
  Receipt Date: 20160729
  Transmission Date: 20161109
  Serious: Yes (Other)
  Sender: FDA-Public Use
  Company Number: JP-DEPOMED, INC.-JP-2016DEP011466

PATIENT
  Age: 75 Year
  Sex: Male
  Weight: 45 kg

DRUGS (10)
  1. LEVOBUPIVACAINE [Suspect]
     Active Substance: LEVOBUPIVACAINE
     Indication: ANALGESIC THERAPY
  2. ROCURONIUM [Concomitant]
     Active Substance: ROCURONIUM BROMIDE
     Indication: MUSCLE RELAXANT THERAPY
     Dosage: 50 MG, UNK
  3. FENTANYL CITRATE. [Suspect]
     Active Substance: FENTANYL CITRATE
     Indication: ANALGESIC THERAPY
     Dosage: 500 ?G, UNK, STARTED AT 4ML/HR
     Route: 008
  4. ROCURONIUM [Concomitant]
     Active Substance: ROCURONIUM BROMIDE
     Indication: ANAESTHESIA
     Dosage: 20MG/HR
  5. REMIFENTANIL [Concomitant]
     Active Substance: REMIFENTANIL
     Indication: ANAESTHESIA
     Dosage: 0.15-025 MCG/KG/MIN
  6. HEPARIN [Concomitant]
     Active Substance: HEPARIN SODIUM
     Indication: PRODUCT USED FOR UNKNOWN INDICATION
     Dosage: UNK, 5,000 UNITS
  7. FENTANYL CITRATE. [Suspect]
     Active Substance: FENTANYL CITRATE
     Indication: EPIDURAL ANAESTHESIA
     Dosage: 200 ?G, UNK
     Route: 008
  8. LEVOBUPIVACAINE [Suspect]
     Active Substance: LEVOBUPIVACAINE
     Indication: EPIDURAL ANAESTHESIA
     Dosage: 190 ML, UNK, 4ML/HR
     Route: 008
  9. SEVOFLURANE. [Concomitant]
     Active Substance: SEVOFLURANE
     Indication: ANAESTHESIA
     Dosage: UNK
  10. PROPOFOL. [Suspect]
     Active Substance: PROPOFOL
     Indication: EPIDURAL ANAESTHESIA
     Dosage: 100 MG, UNK
     Route: 008

REACTIONS (4)
  - Pneumothorax [Unknown]
  - Hypoaesthesia [Recovered/Resolved]
  - Diplegia [Recovered/Resolved]
  - Dysstasia [Recovered/Resolved]
